FAERS Safety Report 21917178 (Version 1)
Quarter: 2023Q1

REPORT INFORMATION
  Report Type: Spontaneous
  Country: BR (occurrence: BR)
  Receive Date: 20230126
  Receipt Date: 20230126
  Transmission Date: 20230418
  Serious: Yes (Other)
  Sender: FDA-Public Use
  Company Number: BR-TAKEDA-2023TUS008211

PATIENT
  Sex: Female

DRUGS (2)
  1. PANTOPRAZOLE [Suspect]
     Active Substance: PANTOPRAZOLE
     Dosage: UNK
     Route: 065
  2. DEXILANT [Suspect]
     Active Substance: DEXLANSOPRAZOLE
     Indication: Oesophagitis
     Dosage: UNK
     Route: 065

REACTIONS (5)
  - Oesophageal disorder [Unknown]
  - Drug ineffective [Unknown]
  - Gastrointestinal injury [Recovered/Resolved with Sequelae]
  - Gastrointestinal scarring [Not Recovered/Not Resolved]
  - Appetite disorder [Unknown]
